FAERS Safety Report 6387558-0 (Version None)
Quarter: 2009Q4

REPORT INFORMATION
  Report Type: 
  Country: None (occurrence: None)
  Receive Date: 20091005
  Receipt Date: 20090922
  Transmission Date: 20100525
  Serious: Yes (Hospitalization, Other)
  Sender: FDA-Public Use
  Company Number: US-CELGENEUS-163-20785-09072177

PATIENT
  Sex: Male

DRUGS (5)
  1. THALOMID [Suspect]
     Indication: MULTIPLE MYELOMA
     Route: 048
     Dates: start: 20061001, end: 20061201
  2. THALOMID [Suspect]
     Dosage: 100MG-200MG
     Route: 048
     Dates: start: 20060801, end: 20060101
  3. DECADRON [Concomitant]
     Indication: DRUG USE FOR UNKNOWN INDICATION
     Dosage: HIGH-DOSE PULSE
     Route: 065
     Dates: start: 20060801, end: 20070205
  4. VELCADE [Concomitant]
     Indication: DRUG USE FOR UNKNOWN INDICATION
     Route: 065
     Dates: start: 20070205
  5. DOXIL [Concomitant]
     Indication: DRUG USE FOR UNKNOWN INDICATION
     Route: 065

REACTIONS (4)
  - ARTHRITIS INFECTIVE [None]
  - EMPYEMA [None]
  - PNEUMONIA [None]
  - STREPTOCOCCAL BACTERAEMIA [None]
